FAERS Safety Report 9955174 (Version 1)
Quarter: 2014Q1

REPORT INFORMATION
  Report Type: Report from Study
  Country: US (occurrence: US)
  Receive Date: 20140304
  Receipt Date: 20140304
  Transmission Date: 20141002
  Serious: No
  Sender: FDA-Public Use
  Company Number: US-ABBVIE-13P-163-1073870-00

PATIENT
  Age: 36 Year
  Sex: Female

DRUGS (9)
  1. HUMIRA [Suspect]
     Indication: CROHN^S DISEASE
     Dosage: START TWO AND ONE-HALF MONTHS AGO
     Dates: start: 201301
  2. HUMIRA [Suspect]
     Indication: ARTHRALGIA
     Dosage: WEEKLY
     Dates: start: 20130314
  3. PLAQUENIL [Concomitant]
     Indication: SYSTEMIC LUPUS ERYTHEMATOSUS
     Dosage: 400 MG DAILY
  4. ACIPHEX [Concomitant]
     Indication: PRODUCT USED FOR UNKNOWN INDICATION
  5. ZOFRAN [Concomitant]
     Indication: GASTROOESOPHAGEAL REFLUX DISEASE
     Dosage: AT BEDTIME
  6. ZOFRAN [Concomitant]
     Indication: IMPAIRED GASTRIC EMPTYING
  7. HYDROCODONE [Concomitant]
     Indication: PAIN
     Dosage: 5/500 MG
  8. PREDNISONE [Concomitant]
     Indication: PRODUCT USED FOR UNKNOWN INDICATION
     Dosage: 4 MG DAILY
  9. PREDNISONE [Concomitant]
     Dosage: 2 MG DAILY

REACTIONS (3)
  - Breakthrough pain [Not Recovered/Not Resolved]
  - Arthralgia [Not Recovered/Not Resolved]
  - Systemic lupus erythematosus [Not Recovered/Not Resolved]
